FAERS Safety Report 21039861 (Version 4)
Quarter: 2022Q4

REPORT INFORMATION
  Report Type: Spontaneous
  Country: JP (occurrence: JP)
  Receive Date: 20220704
  Receipt Date: 20221005
  Transmission Date: 20230113
  Serious: Yes (Hospitalization, Other)
  Sender: FDA-Public Use
  Company Number: JP-ONO-2022JP016778

PATIENT
  Age: 8 Decade
  Sex: Female

DRUGS (11)
  1. BRAFTOVI [Suspect]
     Active Substance: ENCORAFENIB
     Indication: Colon cancer
     Dosage: 300 MG, ONCE IN THE MORNING/7 DAYS
     Route: 048
     Dates: start: 20220517
  2. BRAFTOVI [Suspect]
     Active Substance: ENCORAFENIB
     Dosage: 225 MG/4 DAYS
     Route: 048
     Dates: start: 20220603, end: 20220609
  3. BRAFTOVI [Suspect]
     Active Substance: ENCORAFENIB
     Dosage: 225 MG
     Route: 048
     Dates: start: 20220610
  4. BRAFTOVI [Suspect]
     Active Substance: ENCORAFENIB
     Dosage: 150 MG, 1 WEEK ON/1 WEEK OFF
     Route: 048
     Dates: start: 20220721
  5. ANAMORELIN HYDROCHLORIDE [Suspect]
     Active Substance: ANAMORELIN HYDROCHLORIDE
     Indication: Cachexia
     Dosage: UNK
     Route: 048
     Dates: start: 20220604, end: 20220624
  6. CALONAL [Suspect]
     Active Substance: ACETAMINOPHEN
     Indication: Abdominal pain
     Dosage: 500 MG, PRN
     Route: 065
  7. MINOCYCLINE HYDROCHLORIDE [Suspect]
     Active Substance: MINOCYCLINE HYDROCHLORIDE
     Indication: Chemotherapy side effect prophylaxis
     Dosage: 100 MG, Q12H, MORNING AND EVENING
     Route: 065
     Dates: start: 20220516, end: 20220620
  8. CETUXIMAB [Concomitant]
     Active Substance: CETUXIMAB
     Indication: Colon cancer
     Dosage: UNK
     Route: 065
     Dates: start: 20220517
  9. OLANZAPINE [Concomitant]
     Active Substance: OLANZAPINE
     Dosage: 2.5 MG, EVERYDAY, EVENING
     Route: 048
     Dates: start: 20220517
  10. DOMPERIDONE [Concomitant]
     Active Substance: DOMPERIDONE
     Dosage: 10 MG, Q8H, BEFORE EVERY MEAL
     Route: 048
     Dates: start: 20220517
  11. HERBAL NOS [Concomitant]
     Active Substance: HERBALS
     Dosage: 2.5 G, Q8H
     Route: 065
     Dates: start: 20220608, end: 20220624

REACTIONS (5)
  - Decreased appetite [Unknown]
  - Dehydration [Unknown]
  - Hepatocellular injury [Recovering/Resolving]
  - Pyrexia [Unknown]
  - Abdominal pain [Unknown]

NARRATIVE: CASE EVENT DATE: 20220527
